FAERS Safety Report 23859278 (Version 3)
Quarter: 2024Q3

REPORT INFORMATION
  Report Type: Spontaneous
  Country: DE (occurrence: DE)
  Receive Date: 20240515
  Receipt Date: 20240820
  Transmission Date: 20241016
  Serious: Yes (Other)
  Sender: PFIZER
  Company Number: DE-TEVA-VS-3194953

PATIENT
  Age: 49 Year
  Sex: Female

DRUGS (4)
  1. TRANEXAMIC ACID [Interacting]
     Active Substance: TRANEXAMIC ACID
     Indication: Platelet dysfunction
     Dosage: UNK (INFUSION)
  2. DESLORATADINE [Interacting]
     Active Substance: DESLORATADINE
     Dosage: UNK
     Route: 065
  3. DDAVP [Interacting]
     Active Substance: DESMOPRESSIN ACETATE
     Dosage: UNK
     Route: 065
  4. LORATADINE [Interacting]
     Active Substance: LORATADINE
     Dosage: UNK

REACTIONS (6)
  - Syncope [Unknown]
  - Dyspnoea [Unknown]
  - Cardiospasm [Unknown]
  - Visual impairment [Unknown]
  - Drug interaction [Unknown]
  - Drug intolerance [Unknown]
